FAERS Safety Report 20304840 (Version 1)
Quarter: 2022Q1

REPORT INFORMATION
  Report Type: Spontaneous
  Country: US (occurrence: US)
  Receive Date: 20220106
  Receipt Date: 20220106
  Transmission Date: 20220423
  Serious: No
  Sender: FDA-Public Use
  Company Number: US-HERON THERAPEUTICS, INC-HRTX-2021-000689

PATIENT
  Age: 68 Year
  Sex: Female

DRUGS (1)
  1. ZYNRELEF [Suspect]
     Active Substance: BUPIVACAINE\MELOXICAM
     Indication: Bunion operation
     Dosage: UNK, SINGLE DOSE
     Route: 026
     Dates: start: 20211001

REACTIONS (1)
  - Incision site haemorrhage [Unknown]
